FAERS Safety Report 6652884-4 (Version None)
Quarter: 2010Q1

REPORT INFORMATION
  Report Type: 
  Country: None (occurrence: None)
  Receive Date: 20100326
  Receipt Date: 20100316
  Transmission Date: 20100710
  Serious: Yes (Hospitalization)
  Sender: FDA-Public Use
  Company Number: AT-ABBOTT-10P-009-0633374-00

PATIENT
  Sex: Male
  Weight: 60 kg

DRUGS (5)
  1. HUMIRA [Suspect]
     Indication: DRUG USE FOR UNKNOWN INDICATION
     Route: 058
     Dates: start: 20090825
  2. HUMIRA [Suspect]
     Route: 058
  3. REMICADE [Suspect]
     Indication: CROHN'S DISEASE
     Dosage: LYOPHILIZED
     Route: 042
     Dates: start: 20070315, end: 20090616
  4. ENTOCORT EC [Concomitant]
     Indication: DRUG USE FOR UNKNOWN INDICATION
     Dates: start: 20070418
  5. OMEPRAZOLE [Concomitant]
     Indication: DRUG USE FOR UNKNOWN INDICATION
     Dates: start: 20090315

REACTIONS (5)
  - ANAL FISTULA [None]
  - EPIDIDYMITIS [None]
  - HEPATITIS C ANTIBODY POSITIVE [None]
  - PERIRECTAL ABSCESS [None]
  - TESTICULAR DISORDER [None]
